FAERS Safety Report 9699221 (Version 1)
Quarter: 2013Q4

REPORT INFORMATION
  Report Type: Spontaneous
  Country: BR (occurrence: BR)
  Receive Date: 20131120
  Receipt Date: 20131120
  Transmission Date: 20140711
  Serious: Yes (Hospitalization)
  Sender: FDA-Public Use
  Company Number: BR-IPSEN BIOPHARMACEUTICALS, INC.-2013-5084

PATIENT
  Sex: 0

DRUGS (1)
  1. DYSPORT [Suspect]
     Indication: MUSCLE SPASTICITY
     Dosage: NOT REPORTED
     Route: 030
     Dates: start: 20131104, end: 20131104

REACTIONS (1)
  - Respiratory disorder [Unknown]
